FAERS Safety Report 8761242 (Version 1)
Quarter: 2012Q4

REPORT INFORMATION
  Report Type: 
  Country: FR (occurrence: FR)
  Receive Date: 20120830
  Receipt Date: 20120830
  Transmission Date: 20130627
  Serious: Yes (Hospitalization)
  Sender: FDA-Public Use
  Company Number: FR-GLAXOSMITHKLINE-B0810673A

PATIENT
  Age: 53 Year
  Sex: Male

DRUGS (7)
  1. AUGMENTIN [Suspect]
     Indication: PNEUMONIA
     Dosage: 2G Three times per day
     Route: 042
     Dates: start: 20120528, end: 20120608
  2. VANCOMYCIN [Suspect]
     Indication: PNEUMONIA
     Dosage: 2G Per day
     Route: 042
     Dates: start: 20120525, end: 20120527
  3. GENTAMICIN [Suspect]
     Indication: PNEUMONIA
     Dosage: 400MG Per day
     Route: 042
     Dates: start: 20120525, end: 20120527
  4. ERYTHROMYCIN [Suspect]
     Indication: PNEUMONIA
     Dosage: 600MG Per day
     Route: 042
     Dates: start: 20120528, end: 20120530
  5. ATOVAQUONE [Suspect]
     Indication: PROPHYLAXIS
     Route: 065
     Dates: start: 201206, end: 20120621
  6. CLADRIBINE [Concomitant]
     Indication: CHEMOTHERAPY
     Route: 065
     Dates: start: 20120602
  7. HEPARIN [Concomitant]
     Indication: SPLENIC VEIN THROMBOSIS
     Route: 065
     Dates: start: 20060601

REACTIONS (8)
  - Rash maculo-papular [Recovered/Resolved]
  - Purpura [Recovered/Resolved]
  - Rash pustular [Recovered/Resolved]
  - Oedema peripheral [Unknown]
  - Oedema peripheral [Unknown]
  - Inflammation [Unknown]
  - Pyrexia [Unknown]
  - Erythema [Recovered/Resolved]
